FAERS Safety Report 19046016 (Version 3)
Quarter: 2021Q1

REPORT INFORMATION
  Report Type: Spontaneous
  Country: PT (occurrence: PT)
  Receive Date: 20210323
  Receipt Date: 20210331
  Transmission Date: 20210420
  Serious: Yes (Disabling, Other)
  Sender: FDA-Public Use
  Company Number: PT-JNJFOC-20210314157

PATIENT
  Age: 29 Year
  Sex: Female
  Weight: 59 kg

DRUGS (2)
  1. SIMPONI [Suspect]
     Active Substance: GOLIMUMAB
     Indication: ANKYLOSING SPONDYLITIS
     Route: 058
     Dates: start: 20210225
  2. RANTUDIL 90 RETARD [Concomitant]
     Active Substance: ACEMETACIN
     Dates: start: 2019

REACTIONS (2)
  - Insomnia [Not Recovered/Not Resolved]
  - Depression [Recovering/Resolving]

NARRATIVE: CASE EVENT DATE: 20210227
